FAERS Safety Report 17866208 (Version 1)
Quarter: 2020Q2

REPORT INFORMATION
  Report Type: Spontaneous
  Country: US (occurrence: US)
  Receive Date: 20200605
  Receipt Date: 20200605
  Transmission Date: 20200714
  Serious: No
  Sender: FDA-Public Use
  Company Number: None

PATIENT
  Age: 42 Year
  Sex: Female

DRUGS (1)
  1. HIZENTRA [Suspect]
     Active Substance: HUMAN IMMUNOGLOBULIN G

REACTIONS (5)
  - Chest pain [None]
  - Dyspnoea [None]
  - Flushing [None]
  - Palpitations [None]
  - Hypoaesthesia [None]

NARRATIVE: CASE EVENT DATE: 20200605
